FAERS Safety Report 8476780-5 (Version None)
Quarter: 2012Q2

REPORT INFORMATION
  Report Type: 
  Country: None (occurrence: None)
  Receive Date: 20120628
  Receipt Date: 20120624
  Transmission Date: 20120825
  Serious: Yes (Other)
  Sender: FDA-Public Use
  Company Number: US-MERCK-1206USA04374

PATIENT
  Age: 33 Year
  Sex: Female

DRUGS (3)
  1. PRINIVIL [Suspect]
     Indication: HYPERTENSION
     Route: 048
  2. NIFEDIPINE [Concomitant]
     Route: 065
  3. PRINIVIL [Suspect]
     Indication: POSTERIOR REVERSIBLE ENCEPHALOPATHY SYNDROME
     Route: 048

REACTIONS (2)
  - ISCHAEMIC STROKE [None]
  - POSTERIOR REVERSIBLE ENCEPHALOPATHY SYNDROME [None]
